FAERS Safety Report 23829362 (Version 3)
Quarter: 2024Q3

REPORT INFORMATION
  Report Type: Spontaneous
  Country: US (occurrence: US)
  Receive Date: 20240508
  Receipt Date: 20240712
  Transmission Date: 20241016
  Serious: Yes (Other)
  Sender: BRISTOL MYERS SQUIBB
  Company Number: US-BRISTOL-MYERS SQUIBB COMPANY-2024-069709

PATIENT
  Age: 80 Year
  Sex: Female

DRUGS (2)
  1. REVLIMID [Suspect]
     Active Substance: LENALIDOMIDE
     Indication: Plasma cell myeloma in remission
     Dosage: DAILY FOR 21 DAYS
     Route: 048
     Dates: start: 202404
  2. REVLIMID [Suspect]
     Active Substance: LENALIDOMIDE
     Dosage: 1 TIME A DAY FOR 21 DAYS ON AND 7 DAYS OFF
     Route: 048
     Dates: start: 202404

REACTIONS (7)
  - Neuropathy peripheral [Unknown]
  - Constipation [Unknown]
  - Diarrhoea [Unknown]
  - Fatigue [Unknown]
  - Weight decreased [Unknown]
  - Taste disorder [Unknown]
  - Decreased appetite [Unknown]
